APPROVED DRUG PRODUCT: STELAZINE
Active Ingredient: TRIFLUOPERAZINE HYDROCHLORIDE
Strength: EQ 2MG BASE/ML **Federal Register determination that product was not discontinued or withdrawn for safety or effectiveness reasons**
Dosage Form/Route: INJECTABLE;INJECTION
Application: N011552 | Product #005
Applicant: GLAXOSMITHKLINE
Approved: Approved Prior to Jan 1, 1982 | RLD: Yes | RS: No | Type: DISCN